FAERS Safety Report 11124563 (Version 1)
Quarter: 2015Q2

REPORT INFORMATION
  Report Type: Spontaneous
  Country: US (occurrence: None)
  Receive Date: 20150519
  Receipt Date: 20150519
  Transmission Date: 20150821
  Serious: Yes (Other)
  Sender: FDA-Public Use
  Company Number: None

PATIENT
  Age: 39 Year
  Sex: Male
  Weight: 108.86 kg

DRUGS (2)
  1. HYDROCODONE/ACETAMINOPHEN 10-325 ACTAVIS/WATSON [Suspect]
     Active Substance: ACETAMINOPHEN\HYDROCODONE
     Indication: PAIN IN EXTREMITY
     Dosage: 1 FOUR TIMES DAILY  TAKEN BY MOUTH
     Route: 048
     Dates: start: 20150515, end: 20150518
  2. HYDROCODONE/ACETAMINOPHEN 10-325 ACTAVIS/WATSON [Suspect]
     Active Substance: ACETAMINOPHEN\HYDROCODONE
     Indication: NERVE COMPRESSION
     Dosage: 1 FOUR TIMES DAILY  TAKEN BY MOUTH
     Route: 048
     Dates: start: 20150515, end: 20150518

REACTIONS (3)
  - Drug ineffective [None]
  - Product quality issue [None]
  - Product substitution issue [None]

NARRATIVE: CASE EVENT DATE: 20150518
